FAERS Safety Report 17301230 (Version 4)
Quarter: 2020Q1

REPORT INFORMATION
  Report Type: Spontaneous
  Country: ES (occurrence: ES)
  Receive Date: 20200122
  Receipt Date: 20200213
  Transmission Date: 20200409
  Serious: Yes (Other)
  Sender: FDA-Public Use
  Company Number: NVSC2019ES010621

PATIENT
  Age: 65 Year
  Sex: Female

DRUGS (10)
  1. OMALIZUMAB. [Concomitant]
     Active Substance: OMALIZUMAB
     Dosage: 600 MG, QM
     Route: 065
  2. PREDNISONE. [Suspect]
     Active Substance: PREDNISONE
     Dosage: 45 MG, QOD (DURING 2 MONTHS)
     Route: 048
     Dates: start: 201610
  3. MONTELUKAST [Concomitant]
     Active Substance: MONTELUKAST SODIUM
     Indication: ASTHMA
     Dosage: UNK
     Route: 065
  4. BECLOMETASONE;FORMOTEROL [Concomitant]
     Active Substance: BECLOMETHASONE\FORMOTEROL
     Indication: ASTHMA
     Dosage: 1 DF, Q8H (200/6)
     Route: 065
  5. ACLIDINIUM [Concomitant]
     Active Substance: ACLIDINIUM BROMIDE
     Indication: ASTHMA
     Dosage: UNK
     Route: 065
  6. ITRACONAZOLE. [Concomitant]
     Active Substance: ITRACONAZOLE
     Indication: BRONCHOPULMONARY ASPERGILLOSIS ALLERGIC
     Dosage: UNK
     Route: 065
     Dates: start: 201610, end: 201610
  7. PREDNISONE. [Suspect]
     Active Substance: PREDNISONE
     Indication: BRONCHOPULMONARY ASPERGILLOSIS ALLERGIC
     Dosage: 25 MG, QOD (REDUCED)
     Route: 048
  8. PREDNISONE. [Suspect]
     Active Substance: PREDNISONE
     Dosage: 17.5 MG, QOD
     Route: 048
  9. OMALIZUMAB. [Concomitant]
     Active Substance: OMALIZUMAB
     Indication: BRONCHOPULMONARY ASPERGILLOSIS ALLERGIC
     Dosage: 600 MG, Q15D
     Route: 065
  10. PREDNISONE. [Suspect]
     Active Substance: PREDNISONE
     Dosage: REDUCING 2.5 MG EVERY 15 DAYS
     Route: 048

REACTIONS (19)
  - Acinetobacter infection [Recovered/Resolved]
  - Escherichia infection [Recovered/Resolved]
  - Pseudomonas infection [Recovering/Resolving]
  - Klebsiella infection [Recovered/Resolved]
  - Bacterial infection [Recovered/Resolved]
  - Immunosuppression [Recovering/Resolving]
  - Blood pressure inadequately controlled [Unknown]
  - Rebound effect [Unknown]
  - Staphylococcal infection [Recovering/Resolving]
  - Enterobacter infection [Recovered/Resolved]
  - Pneumonia klebsiella [Recovering/Resolving]
  - Blood immunoglobulin E increased [Unknown]
  - Product use in unapproved indication [Unknown]
  - Diabetes mellitus [Not Recovered/Not Resolved]
  - Cushing^s syndrome [Recovered/Resolved]
  - Drug ineffective [Unknown]
  - Pituitary-dependent Cushing^s syndrome [Recovered/Resolved]
  - Hypertension [Recovered/Resolved]
  - Therapeutic product effect incomplete [Unknown]

NARRATIVE: CASE EVENT DATE: 2017
